FAERS Safety Report 8581903-3 (Version None)
Quarter: 2012Q3

REPORT INFORMATION
  Report Type: 
  Country: None (occurrence: None)
  Receive Date: 20120809
  Receipt Date: 20120730
  Transmission Date: 20120928
  Serious: Yes (Hospitalization)
  Sender: FDA-Public Use
  Company Number: US-ELI_LILLY_AND_COMPANY-US201208000424

PATIENT
  Sex: Male

DRUGS (5)
  1. HUMALOG MIX 75/25 [Suspect]
     Dosage: 20 U, PRN
  2. HUMALOG MIX 75/25 [Suspect]
     Dosage: 20 U, PRN
  3. HUMALOG MIX 75/25 [Suspect]
     Indication: DIABETES MELLITUS
     Dosage: 20 U, PRN
  4. JANUMET [Concomitant]
  5. METFORMIN HYDROCHLORIDE [Concomitant]

REACTIONS (7)
  - GASTROINTESTINAL DISORDER [None]
  - EYE DISORDER [None]
  - BLOOD GLUCOSE INCREASED [None]
  - SOMNOLENCE [None]
  - HOSPITALISATION [None]
  - DIABETIC COMPLICATION [None]
  - FEELING ABNORMAL [None]
